FAERS Safety Report 9642013 (Version 2)
Quarter: 2013Q4

REPORT INFORMATION
  Report Type: Report from Study
  Country: US (occurrence: US)
  Receive Date: 20131023
  Receipt Date: 20131030
  Transmission Date: 20140711
  Serious: Yes (Hospitalization)
  Sender: FDA-Public Use
  Company Number: US-BAXTER-2013BAX041301

PATIENT
  Sex: Female
  Weight: 99.79 kg

DRUGS (6)
  1. GAMMAGARD LIQUID [Suspect]
     Indication: PRIMARY IMMUNODEFICIENCY SYNDROME
     Route: 042
     Dates: start: 20130723, end: 20130723
  2. GAMMAGARD LIQUID [Suspect]
     Route: 042
     Dates: start: 20130813, end: 20130813
  3. GAMMAGARD LIQUID [Suspect]
     Route: 042
     Dates: start: 20130903, end: 20130903
  4. GAMMAGARD LIQUID [Suspect]
     Route: 042
     Dates: start: 20130924, end: 20130924
  5. GAMMAGARD LIQUID [Suspect]
     Route: 042
     Dates: start: 20131015, end: 20131015
  6. GAMMAGARD LIQUID [Suspect]
     Route: 042

REACTIONS (2)
  - Sinusitis [Recovering/Resolving]
  - Pyrexia [Recovered/Resolved]
